FAERS Safety Report 17410332 (Version 2)
Quarter: 2020Q1

REPORT INFORMATION
  Report Type: Spontaneous
  Country: US (occurrence: US)
  Receive Date: 20200212
  Receipt Date: 20200226
  Transmission Date: 20200409
  Serious: Yes (Life-Threatening, Hospitalization, Other)
  Sender: FDA-Public Use
  Company Number: US-SA-2020SA029269

PATIENT
  Age: 27 Year
  Sex: Female

DRUGS (3)
  1. LEMTRADA [Suspect]
     Active Substance: ALEMTUZUMAB
     Indication: RELAPSING-REMITTING MULTIPLE SCLEROSIS
     Dosage: 14 MG, QD
     Route: 041
     Dates: start: 20200127, end: 20200129
  2. KEPPRA [Concomitant]
     Active Substance: LEVETIRACETAM
     Indication: SEIZURE
     Dosage: 500 MG, BID
     Route: 048
  3. GABAPENTIN. [Concomitant]
     Active Substance: GABAPENTIN
     Indication: NEUROPATHY PERIPHERAL
     Dosage: 300 MG, BID
     Route: 048

REACTIONS (10)
  - Palpitations [Recovering/Resolving]
  - Respiratory distress [Recovering/Resolving]
  - Myocarditis [Not Recovered/Not Resolved]
  - Flushing [Recovering/Resolving]
  - Ventricular tachycardia [Recovered/Resolved]
  - Abdominal pain [Recovering/Resolving]
  - Bradycardia [Recovered/Resolved]
  - Sinus tachycardia [Not Recovered/Not Resolved]
  - Troponin increased [Recovered/Resolved]
  - Acute pulmonary oedema [Recovering/Resolving]

NARRATIVE: CASE EVENT DATE: 202001
